FAERS Safety Report 15927791 (Version 1)
Quarter: 2019Q1

REPORT INFORMATION
  Report Type: Spontaneous
  Country: US (occurrence: US)
  Receive Date: 20190206
  Receipt Date: 20190206
  Transmission Date: 20190417
  Serious: No
  Sender: FDA-Public Use
  Company Number: US-BAYER-2019-026568

PATIENT
  Age: 62 Year
  Sex: Female
  Weight: 68 kg

DRUGS (1)
  1. MIRALAX [Suspect]
     Active Substance: POLYETHYLENE GLYCOL 3350
     Indication: IRRITABLE BOWEL SYNDROME
     Dosage: 1 CAP IN 4-8 OZ OF LIQUID
     Route: 048
     Dates: start: 20190204

REACTIONS (4)
  - Off label use [Unknown]
  - Product use in unapproved indication [Unknown]
  - Poor quality product administered [Unknown]
  - Product quality issue [Unknown]
